FAERS Safety Report 22075043 (Version 1)
Quarter: 2023Q1

REPORT INFORMATION
  Report Type: Spontaneous
  Country: US (occurrence: US)
  Receive Date: 20230308
  Receipt Date: 20230308
  Transmission Date: 20230417
  Serious: Yes (Hospitalization)
  Sender: FDA-Public Use
  Company Number: US-ALLERGAN-2232049US

PATIENT
  Sex: Male

DRUGS (2)
  1. MESALAMINE [Suspect]
     Active Substance: MESALAMINE
     Indication: Colitis ulcerative
     Dosage: 4 DF
  2. ENTYVIO [Concomitant]
     Active Substance: VEDOLIZUMAB
     Dosage: UNK
     Dates: start: 20220906

REACTIONS (6)
  - Colitis ulcerative [Unknown]
  - Haemorrhage [Recovering/Resolving]
  - Diarrhoea [Unknown]
  - Nephrolithiasis [Unknown]
  - Weight decreased [Unknown]
  - Malaise [Unknown]
